FAERS Safety Report 11640531 (Version 1)
Quarter: 2015Q4

REPORT INFORMATION
  Report Type: Spontaneous
  Country: GB (occurrence: GB)
  Receive Date: 20151019
  Receipt Date: 20151019
  Transmission Date: 20160304
  Serious: Yes (Other)
  Sender: FDA-Public Use
  Company Number: PHFR2015GB007731

PATIENT
  Sex: Female

DRUGS (3)
  1. CLOZARIL [Suspect]
     Active Substance: CLOZAPINE
     Indication: SCHIZOPHRENIA
     Dosage: UNK
     Route: 048
     Dates: start: 20051118
  2. CLOZARIL [Suspect]
     Active Substance: CLOZAPINE
     Dosage: 575 MG, QHS
     Route: 048
     Dates: end: 20151011
  3. CLOZARIL [Suspect]
     Active Substance: CLOZAPINE
     Dosage: 575 MG, IN MORNING
     Route: 048
     Dates: start: 20151014

REACTIONS (1)
  - Incorrect dose administered [Unknown]
